FAERS Safety Report 25681419 (Version 1)
Quarter: 2025Q3

REPORT INFORMATION
  Report Type: Spontaneous
  Country: US (occurrence: US)
  Receive Date: 20250814
  Receipt Date: 20250814
  Transmission Date: 20251021
  Serious: Yes (Other)
  Sender: MILLICENT HOLDINGS
  Company Number: US-Millicent Holdings Ltd.-MILL20250268

PATIENT
  Sex: Female

DRUGS (2)
  1. INTRAROSA [Suspect]
     Active Substance: PRASTERONE
     Indication: Vaginal infection
     Route: 067
  2. INTRAROSA [Suspect]
     Active Substance: PRASTERONE
     Route: 067

REACTIONS (5)
  - Malignant melanoma [Unknown]
  - Off label use [Unknown]
  - Product dose omission issue [Unknown]
  - Poor quality product administered [Unknown]
  - Product quality issue [Unknown]
